FAERS Safety Report 9400008 (Version 2)
Quarter: 2013Q3

REPORT INFORMATION
  Report Type: Report from Study
  Country: DE (occurrence: DE)
  Receive Date: 20130715
  Receipt Date: 20130725
  Transmission Date: 20140515
  Serious: Yes (Death, Hospitalization)
  Sender: FDA-Public Use
  Company Number: DE-SANOFI-AVENTIS-2013SA067499

PATIENT
  Age: 73 Year
  Sex: Female
  Weight: 67 kg

DRUGS (5)
  1. DOCETAXEL [Suspect]
     Indication: BREAST CANCER
     Route: 041
     Dates: start: 20110818, end: 20110818
  2. DOCETAXEL [Suspect]
     Indication: BREAST CANCER
     Route: 041
     Dates: start: 20121201, end: 20121201
  3. CYCLOPHOSPHAMIDE [Suspect]
     Indication: BREAST CANCER
     Route: 041
     Dates: start: 20110818, end: 20110818
  4. CYCLOPHOSPHAMIDE [Suspect]
     Indication: BREAST CANCER
     Route: 041
     Dates: start: 20121201, end: 20121201
  5. AROMASIN [Suspect]
     Indication: BREAST CANCER
     Route: 048
     Dates: start: 20111222, end: 20130307

REACTIONS (4)
  - Neoplasm progression [Fatal]
  - Pneumonitis [Unknown]
  - Lung infiltration [Unknown]
  - Pleural effusion [Unknown]
